FAERS Safety Report 9270370 (Version 3)
Quarter: 2013Q3

REPORT INFORMATION
  Report Type: Spontaneous
  Country: DE (occurrence: DE)
  Receive Date: 20130503
  Receipt Date: 20130823
  Transmission Date: 20140515
  Serious: Yes (Hospitalization, Other)
  Sender: FDA-Public Use
  Company Number: DE-ELI_LILLY_AND_COMPANY-DE201304007928

PATIENT
  Sex: Male

DRUGS (3)
  1. CIALIS [Suspect]
     Indication: ERECTILE DYSFUNCTION
     Dosage: 5 MG, QD
     Route: 048
     Dates: start: 20120517, end: 20130318
  2. CIALIS [Suspect]
     Dosage: 5 MG, UNKNOWN
     Dates: start: 20120307, end: 20120516
  3. CIALIS [Suspect]
     Dosage: 20 MG, PRN
     Route: 048

REACTIONS (1)
  - Transient ischaemic attack [Recovered/Resolved]
